FAERS Safety Report 15841452 (Version 1)
Quarter: 2019Q1

REPORT INFORMATION
  Report Type: Spontaneous
  Country: US (occurrence: US)
  Receive Date: 20190118
  Receipt Date: 20190118
  Transmission Date: 20190417
  Serious: Yes (Death, Other)
  Sender: FDA-Public Use
  Company Number: US-APOTEX-2019AP005380

PATIENT
  Age: 41 Year
  Sex: Female

DRUGS (4)
  1. CLONAZEPAM. [Suspect]
     Active Substance: CLONAZEPAM
     Dosage: UNK UNK, UNKNOWN
     Route: 065
  2. CHLORPHENIRAMINE                   /00072501/ [Suspect]
     Active Substance: CHLORPHENIRAMINE
     Dosage: UNK UNK, UNKNOWN
     Route: 048
  3. CLONAZEPAM. [Suspect]
     Active Substance: CLONAZEPAM
     Indication: PRODUCT USED FOR UNKNOWN INDICATION
     Dosage: ROUTE: INHALATION
     Route: 050
  4. CHLORPHENIRAMINE                   /00072501/ [Suspect]
     Active Substance: CHLORPHENIRAMINE
     Indication: PRODUCT USED FOR UNKNOWN INDICATION
     Dosage: ROUTE: INHALATION
     Route: 050

REACTIONS (1)
  - Drug abuse [Fatal]
